FAERS Safety Report 12281239 (Version 3)
Quarter: 2016Q3

REPORT INFORMATION
  Report Type: Report from Study
  Country: JP (occurrence: JP)
  Receive Date: 20160419
  Receipt Date: 20160907
  Transmission Date: 20161109
  Serious: Yes (Death, Life-Threatening, Other)
  Sender: FDA-Public Use
  Company Number: JP-BRISTOL-MYERS SQUIBB COMPANY-BMS-2016-025094

PATIENT
  Age: 35 Year
  Sex: Male

DRUGS (3)
  1. EPINASTINE [Concomitant]
     Active Substance: EPINASTINE
     Indication: PRODUCT USED FOR UNKNOWN INDICATION
     Dosage: UNK
     Route: 065
     Dates: start: 20160325, end: 20160325
  2. ACETAMINOPHEN. [Concomitant]
     Active Substance: ACETAMINOPHEN
     Indication: PRODUCT USED FOR UNKNOWN INDICATION
     Dosage: UNK
     Route: 065
     Dates: start: 20160325, end: 20160325
  3. NIVOLUMAB [Suspect]
     Active Substance: NIVOLUMAB
     Indication: NON-SMALL CELL LUNG CANCER
     Dosage: 3 MG/KG, Q2MO
     Route: 041
     Dates: start: 20160323, end: 20160323

REACTIONS (4)
  - Alanine aminotransferase increased [Not Recovered/Not Resolved]
  - Infusion related reaction [Recovering/Resolving]
  - Haemothorax [Fatal]
  - Aspartate aminotransferase increased [Not Recovered/Not Resolved]

NARRATIVE: CASE EVENT DATE: 201603
